FAERS Safety Report 4958960-6 (Version None)
Quarter: 2006Q1

REPORT INFORMATION
  Report Type: 
  Country: None (occurrence: None)
  Receive Date: 20060327
  Receipt Date: 20060324
  Transmission Date: 20060701
  Serious: Yes (Hospitalization, Other)
  Sender: FDA-Public Use
  Company Number: GBWYE339527JAN06

PATIENT
  Age: 72 Year
  Sex: Male

DRUGS (9)
  1. RAPAMUNE [Suspect]
     Indication: RENAL TRANSPLANT
     Dosage: 3 MG, ORAL
     Route: 048
     Dates: start: 20050419
  2. MYCOPHENOLATE MOFETIL [Concomitant]
  3. PREDNISOLONE [Concomitant]
  4. COTRIM [Concomitant]
  5. FELODIPINE [Concomitant]
  6. TAMSULOSIN HCL [Concomitant]
  7. ALFACALCIDOL (ALFACALCIDOL) [Concomitant]
  8. LOPERAMIDE HCL [Concomitant]
  9. ASPIRIN [Concomitant]

REACTIONS (11)
  - BLADDER OBSTRUCTION [None]
  - BLOOD CREATININE INCREASED [None]
  - CONFUSIONAL STATE [None]
  - CSF PROTEIN [None]
  - CSF TEST ABNORMAL [None]
  - EPSTEIN-BARR VIRUS INFECTION [None]
  - INFECTION [None]
  - MALAISE [None]
  - PYREXIA [None]
  - URINE OUTPUT DECREASED [None]
  - VOMITING [None]
